FAERS Safety Report 17178701 (Version 1)
Quarter: 2019Q4

REPORT INFORMATION
  Report Type: Spontaneous
  Country: ES (occurrence: ES)
  Receive Date: 20191219
  Receipt Date: 20191219
  Transmission Date: 20200122
  Serious: Yes (Other)
  Sender: FDA-Public Use
  Company Number: ES-TEVA-2019-ES-1152820

PATIENT
  Age: 70 Year
  Sex: Male

DRUGS (2)
  1. IBUPROFENO (1769A) [Suspect]
     Active Substance: IBUPROFEN
     Dates: start: 20191018
  2. STOPCOLD 5 MG/120 MG COMPRIMIDOS DE LIBERACION PROLONGADA [Suspect]
     Active Substance: CETIRIZINE HYDROCHLORIDE\PSEUDOEPHEDRINE HYDROCHLORIDE
     Indication: CATARRH
     Dosage: 1/12 HOURS
     Dates: start: 20191018

REACTIONS (1)
  - Urinary retention [Unknown]

NARRATIVE: CASE EVENT DATE: 201910
